FAERS Safety Report 4380192-3 (Version None)
Quarter: 2004Q2

REPORT INFORMATION
  Report Type: 
  Country: None (occurrence: None)
  Receive Date: 20040601
  Receipt Date: 20040210
  Transmission Date: 20050107
  Serious: No
  Sender: FDA-Public Use
  Company Number: WAES0309USA02009

PATIENT
  Age: 58 Year
  Sex: Female
  Weight: 81.6475 kg

DRUGS (16)
  1. ZETIA [Suspect]
     Indication: HYPERCHOLESTEROLAEMIA
     Dosage: 10 MG/AM/PO; 10 MG/HS/PO
     Route: 048
     Dates: start: 20030701, end: 20040101
  2. ZETIA [Suspect]
     Indication: HYPERCHOLESTEROLAEMIA
     Dosage: 10 MG/AM/PO; 10 MG/HS/PO
     Route: 048
     Dates: start: 20040201
  3. ALLEGRA [Concomitant]
  4. AMARYL [Concomitant]
  5. COMBIPATCH [Concomitant]
  6. GLUCOPHAGE XR [Concomitant]
  7. NEXIUM [Concomitant]
  8. PRINIVIL [Concomitant]
  9. SOMA [Concomitant]
  10. TEGRETOL [Concomitant]
  11. TRICOR [Concomitant]
  12. VICODIN ES [Concomitant]
  13. VIOXX [Concomitant]
  14. ZOCOR [Concomitant]
  15. ASPIRIN [Concomitant]
  16. QUININE SULFATE [Concomitant]

REACTIONS (3)
  - FEELING ABNORMAL [None]
  - NERVOUSNESS [None]
  - TENSION HEADACHE [None]
